FAERS Safety Report 5474562-X (Version None)
Quarter: 2007Q4

REPORT INFORMATION
  Report Type: 
  Country: None (occurrence: None)
  Receive Date: 20071002
  Receipt Date: 20070924
  Transmission Date: 20080405
  Serious: Yes (Other)
  Sender: FDA-Public Use
  Company Number: US-AMGEN-US244542

PATIENT
  Sex: Male

DRUGS (9)
  1. ARANESP [Suspect]
     Indication: RENAL FAILURE CHRONIC
     Route: 065
     Dates: start: 20060101
  2. CELLCEPT [Concomitant]
  3. AMIODARONE [Concomitant]
  4. LASIX [Concomitant]
  5. METOLAZONE [Concomitant]
  6. ASPIRIN [Concomitant]
  7. CHONDROITIN [Concomitant]
  8. FERROUS GLUCONATE [Concomitant]
  9. VITAMIN CAP [Concomitant]

REACTIONS (1)
  - BREAST SWELLING [None]
